FAERS Safety Report 5401245-4 (Version None)
Quarter: 2007Q3

REPORT INFORMATION
  Report Type: 
  Country: None (occurrence: None)
  Receive Date: 20070731
  Receipt Date: 20070716
  Transmission Date: 20080115
  Serious: Yes (Hospitalization)
  Sender: FDA-Public Use
  Company Number: DE-AVENTIS-200511351DE

PATIENT
  Age: 74 Year
  Sex: Male
  Weight: 74 kg

DRUGS (6)
  1. RILUZOLE [Suspect]
     Indication: MULTIPLE SYSTEM ATROPHY
     Dosage: DOSE: 2-0-2
     Route: 048
     Dates: start: 20010329
  2. MADOPAR                            /00349201/ [Concomitant]
     Indication: MULTIPLE SYSTEM ATROPHY
     Route: 048
  3. DOMPERIDON [Concomitant]
     Indication: NAUSEA
     Route: 048
  4. DIGITOXIN TAB [Concomitant]
     Route: 048
  5. ENALAPRIL MALEATE [Concomitant]
     Indication: HYPERTENSION
     Route: 048
  6. FUROSEMIDE [Concomitant]
     Indication: HYPERTENSION
     Route: 048

REACTIONS (5)
  - ABDOMINAL PAIN [None]
  - BACK PAIN [None]
  - FAECES PALE [None]
  - FLATULENCE [None]
  - PATHOLOGICAL FRACTURE [None]
